FAERS Safety Report 8363779-2 (Version None)
Quarter: 2012Q1

REPORT INFORMATION
  Report Type: 
  Country: None (occurrence: None)
  Receive Date: 20120323
  Receipt Date: 20111122
  Transmission Date: 20120608
  Serious: Yes (Other)
  Sender: FDA-Public Use
  Company Number: 163-21880-11113284

PATIENT
  Age: 59 Year
  Sex: Female

DRUGS (9)
  1. CLONAZEPAM [Concomitant]
  2. DILAUDID [Concomitant]
  3. SYNTHROID [Concomitant]
  4. ASPIRIN [Concomitant]
  5. GABAPENTIN [Concomitant]
  6. ZOMETA [Concomitant]
  7. REVLIMID [Suspect]
     Indication: MULTIPLE MYELOMA
     Dosage: 15 MG X 14 DAYS ON 21 DAY SCHEDULE, PO
     Route: 048
     Dates: start: 20100319
  8. ACYCLOVIR [Concomitant]
  9. VELCADE [Concomitant]

REACTIONS (7)
  - UPPER RESPIRATORY TRACT INFECTION [None]
  - SWELLING FACE [None]
  - PAIN IN EXTREMITY [None]
  - FEELING HOT [None]
  - NEUROPATHY PERIPHERAL [None]
  - DIARRHOEA [None]
  - VIRAL INFECTION [None]
